FAERS Safety Report 21589774 (Version 1)
Quarter: 2022Q4

REPORT INFORMATION
  Report Type: Spontaneous
  Country: US (occurrence: None)
  Receive Date: 20221111
  Receipt Date: 20221111
  Transmission Date: 20230113
  Serious: Yes (unspecified)
  Sender: FDA-Public Use
  Company Number: None

PATIENT
  Age: 41 Year
  Sex: Female
  Weight: 80.1 kg

DRUGS (3)
  1. RHOPHYLAC [Suspect]
     Active Substance: HUMAN RHO(D) IMMUNE GLOBULIN
     Indication: Rhesus antigen negative
     Route: 030
     Dates: start: 20221110, end: 20221110
  2. VITAMINS [Concomitant]
     Active Substance: VITAMINS
  3. ASPIRIN [Concomitant]
     Active Substance: ASPIRIN

REACTIONS (10)
  - Tremor [None]
  - Hypoaesthesia [None]
  - Hypoaesthesia [None]
  - Headache [None]
  - Feeling abnormal [None]
  - Malaise [None]
  - Throat tightness [None]
  - Fatigue [None]
  - Arthralgia [None]
  - Incoherent [None]

NARRATIVE: CASE EVENT DATE: 20221110
